FAERS Safety Report 7463219-1 (Version None)
Quarter: 2011Q2

REPORT INFORMATION
  Report Type: 
  Country: None (occurrence: None)
  Receive Date: 20110506
  Receipt Date: 20110505
  Transmission Date: 20111010
  Serious: Yes (Other)
  Sender: FDA-Public Use
  Company Number: US-PFIZER INC-2011097183

PATIENT
  Sex: Female
  Weight: 69 kg

DRUGS (4)
  1. PRILOSEC [Concomitant]
     Indication: GASTROOESOPHAGEAL REFLUX DISEASE
     Dosage: UNK
     Route: 048
  2. CHANTIX [Suspect]
     Indication: SMOKING CESSATION THERAPY
     Dosage: 0.5 MG, 1X/DAY
     Route: 048
     Dates: start: 20110419, end: 20110401
  3. CHANTIX [Suspect]
     Dosage: 0.5 MG, 2X/DAY
     Route: 048
     Dates: start: 20110401, end: 20110425
  4. PREMARIN [Concomitant]
     Indication: HYSTERECTOMY
     Dosage: 0.625 MG, UNK
     Route: 048
     Dates: start: 19910101

REACTIONS (2)
  - HYPERVENTILATION [None]
  - PALPITATIONS [None]
